FAERS Safety Report 5250699-5 (Version None)
Quarter: 2007Q1

REPORT INFORMATION
  Report Type: 
  Country: None (occurrence: None)
  Receive Date: 20070228
  Receipt Date: 20060621
  Transmission Date: 20070707
  Serious: No
  Sender: FDA-Public Use
  Company Number: US-GLAXOSMITHKLINE-A0609846A

PATIENT
  Age: 24 Year
  Sex: Female

DRUGS (4)
  1. LAMICTAL [Suspect]
     Dosage: 200MG PER DAY
     Route: 048
     Dates: start: 20060301
  2. ZYRTEC [Concomitant]
  3. SEASONALE [Concomitant]
  4. AMBIEN [Concomitant]

REACTIONS (1)
  - FOOD ALLERGY [None]
